FAERS Safety Report 9018396 (Version 1)
Quarter: 2013Q1

REPORT INFORMATION
  Report Type: Spontaneous
  Country: US (occurrence: None)
  Receive Date: 20130111
  Receipt Date: 20130111
  Transmission Date: 20140127
  Serious: Yes (Life-Threatening)
  Sender: FDA-Public Use
  Company Number: None

PATIENT
  Age: 66 Year
  Sex: Male
  Weight: 99.81 kg

DRUGS (10)
  1. COUMADIN [Suspect]
     Indication: PORTAL VEIN THROMBOSIS
     Dosage: 2.5MG SSMTWF PO
     Route: 048
  2. COUMADIN [Suspect]
     Indication: PORTAL VEIN THROMBOSIS
     Dosage: 2.5MG SSMTWF PO
     Route: 048
  3. ALDACTONE [Concomitant]
  4. MVI [Concomitant]
  5. VIT C [Concomitant]
  6. CA [Concomitant]
  7. LUTEIN [Concomitant]
  8. HYDROXYUREA [Concomitant]
  9. PROTONIX [Concomitant]
  10. PROPANOLOL [Concomitant]

REACTIONS (4)
  - Oesophageal varices haemorrhage [None]
  - International normalised ratio increased [None]
  - Coagulopathy [None]
  - Upper gastrointestinal haemorrhage [None]
